FAERS Safety Report 6886752-X (Version None)
Quarter: 2010Q3

REPORT INFORMATION
  Report Type: 
  Country: None (occurrence: None)
  Receive Date: 20100730
  Receipt Date: 20100720
  Transmission Date: 20110219
  Serious: Yes (Hospitalization)
  Sender: FDA-Public Use
  Company Number: US-SHIRE-ALL1-2010-03945

PATIENT

DRUGS (4)
  1. FOSRENOL [Suspect]
     Indication: HYPERPHOSPHATAEMIA
     Dosage: 1000 MG, 3X/DAY:TID WITH MEALS AND 500 MG WITH TWO SNACKS
     Route: 048
     Dates: start: 20070101
  2. DARVOCET [Concomitant]
     Indication: OSTEOPOROSIS
     Dosage: UNK MG, AS REQ'D
     Route: 048
  3. PROTONIX [Concomitant]
     Indication: DIVERTICULITIS
     Dosage: 40 MG, 1X/DAY:QD
     Route: 048
     Dates: start: 20050101
  4. RENALVITE [Concomitant]
     Indication: VITAMIN SUPPLEMENTATION
     Dosage: UNK, 1X/DAY:QD
     Route: 048
     Dates: start: 20060101

REACTIONS (6)
  - ASTHENIA [None]
  - FALL [None]
  - HEAD INJURY [None]
  - HOSPITALISATION [None]
  - WEIGHT DECREASED [None]
  - X-RAY GASTROINTESTINAL TRACT ABNORMAL [None]
